FAERS Safety Report 13284476 (Version 1)
Quarter: 2017Q1

REPORT INFORMATION
  Report Type: Spontaneous
  Country: DE (occurrence: DE)
  Receive Date: 20170301
  Receipt Date: 20170301
  Transmission Date: 20170428
  Serious: Yes (Other)
  Sender: FDA-Public Use
  Company Number: DE-GILEAD-2017-0258614

PATIENT
  Age: 57 Year
  Sex: Male
  Weight: 86 kg

DRUGS (1)
  1. RANOLAZINE [Suspect]
     Active Substance: RANOLAZINE
     Indication: ANGINA PECTORIS
     Route: 048
     Dates: start: 20161104

REACTIONS (13)
  - Sluggishness [Unknown]
  - Cough [Unknown]
  - Flushing [Unknown]
  - Muscular weakness [Unknown]
  - Hyperhidrosis [Unknown]
  - Tremor [Unknown]
  - Hallucination [Unknown]
  - Asthenia [Unknown]
  - Dyspnoea [Unknown]
  - Dry mouth [Unknown]
  - Cold sweat [Unknown]
  - Fatigue [Unknown]
  - Nausea [Unknown]

NARRATIVE: CASE EVENT DATE: 201612
